FAERS Safety Report 4964855-4 (Version None)
Quarter: 2006Q2

REPORT INFORMATION
  Report Type: 
  Country: None (occurrence: None)
  Receive Date: 20060406
  Receipt Date: 20060327
  Transmission Date: 20061013
  Serious: Yes (Hospitalization)
  Sender: FDA-Public Use
  Company Number: NZ-BRISTOL-MYERS SQUIBB COMPANY-13337084

PATIENT
  Age: 55 Year
  Sex: Male

DRUGS (6)
  1. ETOPOSIDE [Suspect]
     Indication: DRUG USE FOR UNKNOWN INDICATION
  2. IFOSFAMIDE [Suspect]
     Indication: DRUG USE FOR UNKNOWN INDICATION
  3. MESNA [Suspect]
     Indication: DRUG USE FOR UNKNOWN INDICATION
  4. RITUXIMAB [Suspect]
     Indication: DRUG USE FOR UNKNOWN INDICATION
  5. CARBOPLATINE [Suspect]
     Indication: DRUG USE FOR UNKNOWN INDICATION
  6. G-CSF [Suspect]
     Indication: DRUG USE FOR UNKNOWN INDICATION
     Route: 058

REACTIONS (1)
  - NEUTROPENIC SEPSIS [None]
